FAERS Safety Report 5066205-4 (Version None)
Quarter: 2006Q3

REPORT INFORMATION
  Report Type: 
  Country: None (occurrence: None)
  Receive Date: 20060801
  Receipt Date: 20060720
  Transmission Date: 20061208
  Serious: Yes (Hospitalization)
  Sender: FDA-Public Use
  Company Number: DE-JNJFOC-20060306877

PATIENT
  Age: 43 Year
  Sex: Male
  Weight: 126 kg

DRUGS (6)
  1. REMICADE [Suspect]
     Indication: PARAPSORIASIS
     Route: 042
  2. NORVASC [Concomitant]
     Indication: HYPERTENSION
     Route: 048
  3. DOXYHEXAL [Concomitant]
     Route: 048
  4. ACC AKUT [Concomitant]
  5. ACETAMINOPHEN [Concomitant]
     Indication: PSORIATIC ARTHROPATHY
     Route: 065
  6. NOVALGIN [Concomitant]
     Indication: PSORIATIC ARTHROPATHY
     Route: 048

REACTIONS (10)
  - COUGH [None]
  - FATIGUE [None]
  - GENERAL PHYSICAL CONDITION ABNORMAL [None]
  - NASOPHARYNGITIS [None]
  - PNEUMONIA [None]
  - PYREXIA [None]
  - RHINORRHOEA [None]
  - TUBERCULOSIS [None]
  - VOMITING [None]
  - WEIGHT DECREASED [None]
